FAERS Safety Report 4947630-6 (Version None)
Quarter: 2006Q1

REPORT INFORMATION
  Report Type: 
  Country: None (occurrence: None)
  Receive Date: 20060314
  Receipt Date: 20060302
  Transmission Date: 20060701
  Serious: Yes (Other)
  Sender: FDA-Public Use
  Company Number: 2006027856

PATIENT
  Age: 69 Year
  Sex: Male
  Weight: 106.7 kg

DRUGS (6)
  1. SOMATROPIN (SOMATROPIN) [Suspect]
     Indication: GROWTH HORMONE DEFICIENCY
     Dosage: 0.2 MG INTRAVENOUS
     Route: 042
     Dates: start: 20051201, end: 20060208
  2. HYDROCORTISONE [Concomitant]
  3. THYROXINE (THYROXINE) [Concomitant]
  4. AMLODIPINE [Concomitant]
  5. ROSUVASTATIN (ROSUVASTATIN) [Concomitant]
  6. SUSTANON (SEE IMAGE) [Concomitant]

REACTIONS (4)
  - ARTHRALGIA [None]
  - DYSPNOEA [None]
  - LETHARGY [None]
  - RASH MACULAR [None]
